FAERS Safety Report 13030278 (Version 1)
Quarter: 2016Q4

REPORT INFORMATION
  Report Type: Report from Study
  Country: None (occurrence: CA)
  Receive Date: 20161215
  Receipt Date: 20161215
  Transmission Date: 20170207
  Serious: Yes (Other)
  Sender: FDA-Public Use
  Company Number: CA-ABBVIE-16K-028-1612768-00

PATIENT
  Sex: Female

DRUGS (1)
  1. HUMIRA [Suspect]
     Active Substance: ADALIMUMAB
     Indication: CROHN^S DISEASE
     Route: 058
     Dates: start: 20141027, end: 20161121

REACTIONS (4)
  - Urticaria [Not Recovered/Not Resolved]
  - Postoperative wound infection [Unknown]
  - Post procedural complication [Unknown]
  - Infection [Unknown]

NARRATIVE: CASE EVENT DATE: 2016
